FAERS Safety Report 24634071 (Version 1)
Quarter: 2024Q4

REPORT INFORMATION
  Report Type: Spontaneous
  Country: UA (occurrence: UA)
  Receive Date: 20241119
  Receipt Date: 20241119
  Transmission Date: 20250115
  Serious: Yes (Other)
  Sender: JOHNSON AND JOHNSON
  Company Number: UA-BAYER-2024A162705

PATIENT
  Sex: Male

DRUGS (1)
  1. XARELTO [Suspect]
     Active Substance: RIVAROXABAN
     Indication: Product used for unknown indication
     Dosage: 20 MG
     Route: 048

REACTIONS (5)
  - Arrhythmia [Not Recovered/Not Resolved]
  - Coronary arterial stent insertion [Unknown]
  - Cardiac pacemaker insertion [Unknown]
  - Product packaging issue [Unknown]
  - Suspected counterfeit product [Unknown]
